FAERS Safety Report 5903227-2 (Version None)
Quarter: 2008Q3

REPORT INFORMATION
  Report Type: 
  Country: None (occurrence: None)
  Receive Date: 20080926
  Receipt Date: 20080917
  Transmission Date: 20090109
  Serious: Yes (Life-Threatening, Hospitalization, Disabling)
  Sender: FDA-Public Use
  Company Number: GXKR2008GB08918

PATIENT
  Age: 31 Year
  Sex: Female
  Weight: 80 kg

DRUGS (2)
  1. CITALOPRAM HYDROBROMIDE [Suspect]
     Indication: DEPRESSION
     Dosage: 20 MG, ORAL; 40 MG
     Route: 048
     Dates: end: 20080826
  2. DIANETTE (CYPROTERONE ACETATE, ETHINYLESTRADIOL) [Suspect]
     Dosage: 1 DF, QD, ORAL
     Route: 048
     Dates: end: 20080826

REACTIONS (1)
  - HAEMORRHAGE INTRACRANIAL [None]
